FAERS Safety Report 9322765 (Version 3)
Quarter: 2013Q2

REPORT INFORMATION
  Report Type: Spontaneous
  Country: US (occurrence: US)
  Receive Date: 20130601
  Receipt Date: 20130620
  Transmission Date: 20140414
  Serious: No
  Sender: FDA-Public Use
  Company Number: US-009507513-1305USA013173

PATIENT
  Age: 69 Year
  Sex: Male

DRUGS (6)
  1. INVANZ [Suspect]
     Indication: DEVICE RELATED INFECTION
     Dosage: 1G ONCE A DAY
     Route: 042
     Dates: start: 201305
  2. INVANZ [Suspect]
     Dosage: 1G ONCE A DAY
     Route: 042
     Dates: start: 20130510
  3. TYLENOL [Concomitant]
  4. MIRALAX [Concomitant]
  5. RIFAMPIN [Concomitant]
  6. CELEBREX [Concomitant]

REACTIONS (2)
  - Clostridium difficile colitis [Unknown]
  - Abdominal pain [Unknown]
